FAERS Safety Report 9776424 (Version 1)
Quarter: 2013Q4

REPORT INFORMATION
  Report Type: Spontaneous
  Country: US (occurrence: US)
  Receive Date: 20131220
  Receipt Date: 20131220
  Transmission Date: 20140711
  Serious: No
  Sender: FDA-Public Use
  Company Number: US-BIOGENIDEC-2013BI120818

PATIENT
  Age: 59 Year
  Sex: Female

DRUGS (1)
  1. TECFIDERA [Suspect]
     Indication: MULTIPLE SCLEROSIS
     Route: 048
     Dates: start: 20130813

REACTIONS (11)
  - Cough [Recovered/Resolved with Sequelae]
  - Erythema [Recovered/Resolved with Sequelae]
  - Throat irritation [Not Recovered/Not Resolved]
  - Toothache [Not Recovered/Not Resolved]
  - Dry eye [Not Recovered/Not Resolved]
  - Eye pain [Not Recovered/Not Resolved]
  - Migraine [Not Recovered/Not Resolved]
  - Dysphonia [Recovered/Resolved with Sequelae]
  - Pharyngeal erythema [Not Recovered/Not Resolved]
  - Flushing [Not Recovered/Not Resolved]
  - Erythema of eyelid [Not Recovered/Not Resolved]
